FAERS Safety Report 5079920-3 (Version None)
Quarter: 2006Q3

REPORT INFORMATION
  Report Type: 
  Country: None (occurrence: None)
  Receive Date: 20060815
  Receipt Date: 20060803
  Transmission Date: 20061208
  Serious: Yes (Hospitalization, Other)
  Sender: FDA-Public Use
  Company Number: US-AMGEN-US188820

PATIENT
  Sex: Male
  Weight: 66 kg

DRUGS (18)
  1. EPOGEN [Suspect]
     Indication: DIALYSIS
     Route: 042
     Dates: start: 20010101
  2. ASPIRIN [Suspect]
  3. ALTACE [Suspect]
  4. PLAVIX [Suspect]
  5. HEPARIN [Suspect]
  6. QUININE SULFATE [Suspect]
  7. AMBIEN [Concomitant]
  8. COREG [Concomitant]
  9. VITAMINS [Concomitant]
  10. NOVOLIN 70/30 [Concomitant]
  11. LANTUS [Concomitant]
  12. LIPITOR [Concomitant]
  13. LORAZEPAM [Concomitant]
  14. LUNESTA [Concomitant]
  15. PREDNISONE [Concomitant]
  16. RENAGEL [Concomitant]
  17. SINEMET [Concomitant]
  18. TUMS [Concomitant]

REACTIONS (10)
  - APLASTIC ANAEMIA [None]
  - CARDIO-RESPIRATORY ARREST [None]
  - CARNITINE DECREASED [None]
  - DIABETIC COMPLICATION [None]
  - IMPAIRED HEALING [None]
  - LEG AMPUTATION [None]
  - POST PROCEDURAL COMPLICATION [None]
  - RENAL AND PANCREAS TRANSPLANT REJECTION [None]
  - SUDDEN DEATH [None]
  - THERAPEUTIC RESPONSE DECREASED [None]
